FAERS Safety Report 24918027 (Version 2)
Quarter: 2025Q1

REPORT INFORMATION
  Report Type: Spontaneous
  Country: CN (occurrence: CN)
  Receive Date: 20250203
  Receipt Date: 20250205
  Transmission Date: 20250409
  Serious: Yes (Other)
  Sender: MERCK
  Company Number: CN-009507513-2501CHN009896

PATIENT
  Age: 63 Year
  Sex: Female

DRUGS (4)
  1. CILASTATIN SODIUM\IMIPENEM [Suspect]
     Active Substance: CILASTATIN SODIUM\IMIPENEM
     Indication: Anti-infective therapy
     Dosage: 0.5 GRAM, TID
     Route: 042
  2. SODIUM CHLORIDE [Concomitant]
     Active Substance: SODIUM CHLORIDE
  3. NOW BRANCHED CHAIN AMINO ACIDS [Concomitant]
     Indication: Hepatic encephalopathy
  4. ACETIC ACID [Concomitant]
     Active Substance: ACETIC ACID
     Indication: Hepatic encephalopathy

REACTIONS (1)
  - Epilepsy [Recovered/Resolved]
